FAERS Safety Report 6438986-6 (Version None)
Quarter: 2009Q4

REPORT INFORMATION
  Report Type: 
  Country: None (occurrence: None)
  Receive Date: 20091113
  Receipt Date: 20091102
  Transmission Date: 20100525
  Serious: No
  Sender: FDA-Public Use
  Company Number: US-B.I. PHARMACEUTICALS,INC./RIDGEFIELD-2009-BP-08643BP

PATIENT
  Sex: Male

DRUGS (12)
  1. FLOMAX [Suspect]
     Indication: BENIGN PROSTATIC HYPERPLASIA
     Dosage: 0.4 MG
     Route: 048
     Dates: start: 20090601
  2. FLOMAX [Suspect]
     Indication: PROSTATIC DISORDER
  3. FLOMAX [Suspect]
     Indication: NOCTURIA
  4. ARICEPT [Concomitant]
  5. LEXAPRO [Concomitant]
  6. CADUET [Concomitant]
  7. ACEON [Concomitant]
  8. CARDURA [Concomitant]
  9. PLAVIX [Concomitant]
     Dosage: 37.5 MG
     Route: 048
  10. BISOPROLOL [Concomitant]
  11. AVODART [Concomitant]
     Indication: BLADDER DISORDER
     Dosage: 0.5 MG
     Route: 048
  12. DAILY VITAMIN [Concomitant]

REACTIONS (6)
  - AMNESIA [None]
  - BLADDER DISORDER [None]
  - EPISTAXIS [None]
  - EYE DISORDER [None]
  - NOCTURIA [None]
  - RHINORRHOEA [None]
